FAERS Safety Report 7194193-3 (Version None)
Quarter: 2010Q4

REPORT INFORMATION
  Report Type: 
  Country: None (occurrence: None)
  Receive Date: 20101223
  Receipt Date: 20101214
  Transmission Date: 20110411
  Serious: Yes (Death, Hospitalization)
  Sender: FDA-Public Use
  Company Number: JP-AMGEN-QUU440810

PATIENT

DRUGS (8)
  1. ENBREL [Suspect]
     Indication: RHEUMATOID ARTHRITIS
     Dosage: 25 MG, 2 TIMES/WK
     Route: 058
     Dates: start: 20100601, end: 20100901
  2. ENBREL [Suspect]
  3. HYPEN [Concomitant]
  4. COUGHNOL [Concomitant]
  5. MUCOSTA [Concomitant]
  6. PREDNISOLONE [Concomitant]
  7. GOODMIN [Concomitant]
  8. UNSPECIFIED HERBAL [Concomitant]
     Dosage: 2.5 UNK, UNK

REACTIONS (2)
  - HERPES ZOSTER [None]
  - INTERSTITIAL LUNG DISEASE [None]
